FAERS Safety Report 17573633 (Version 1)
Quarter: 2020Q1

REPORT INFORMATION
  Report Type: Spontaneous
  Country: US (occurrence: US)
  Receive Date: 20200323
  Receipt Date: 20200323
  Transmission Date: 20200409
  Serious: No
  Sender: FDA-Public Use
  Company Number: US-ELI_LILLY_AND_COMPANY-US202001009574

PATIENT
  Age: 39 Year
  Sex: Female

DRUGS (3)
  1. MAXALT [Concomitant]
     Active Substance: RIZATRIPTAN BENZOATE
     Indication: MIGRAINE
     Dosage: 10 MG, PRN
  2. IBUPROFEN. [Concomitant]
     Active Substance: IBUPROFEN
     Indication: MIGRAINE
     Dosage: 2 DOSAGE FORM, PRN
  3. EMGALITY [Suspect]
     Active Substance: GALCANEZUMAB-GNLM
     Indication: MIGRAINE
     Dosage: 120 MG, UNKNOWN
     Route: 058
     Dates: start: 20200106

REACTIONS (2)
  - Influenza [Unknown]
  - Upper respiratory tract infection [Unknown]

NARRATIVE: CASE EVENT DATE: 202002
